FAERS Safety Report 6770995-X (Version None)
Quarter: 2010Q2

REPORT INFORMATION
  Report Type: 
  Country: None (occurrence: None)
  Receive Date: 20100616
  Receipt Date: 20100608
  Transmission Date: 20101027
  Serious: No
  Sender: FDA-Public Use
  Company Number: US-BIOGENIDEC-2010BI019585

PATIENT
  Sex: Female

DRUGS (1)
  1. TYSABRI [Suspect]
     Indication: MULTIPLE SCLEROSIS
     Route: 042
     Dates: start: 20080916

REACTIONS (5)
  - BREATH SOUNDS ABNORMAL [None]
  - CHEST DISCOMFORT [None]
  - DYSKINESIA [None]
  - MUSCLE SPASMS [None]
  - MUSCULAR WEAKNESS [None]
